FAERS Safety Report 12663182 (Version 2)
Quarter: 2017Q4

REPORT INFORMATION
  Report Type: Report from Study
  Country: IT (occurrence: IT)
  Receive Date: 20160818
  Receipt Date: 20171129
  Transmission Date: 20180320
  Serious: Yes (Other)
  Sender: FDA-Public Use
  Company Number: IT-AUROBINDO-AUR-APL-2016-10318

PATIENT
  Age: 75 Year
  Sex: Female

DRUGS (8)
  1. MEMANTINE FILM-COATED TABLETS [Suspect]
     Active Substance: MEMANTINE
     Indication: DEMENTIA ALZHEIMER^S TYPE
     Dosage: 5 MG, DAILY
     Route: 048
     Dates: start: 20160216, end: 20160222
  2. DONEPEZIL HYDROCHLORIDE. [Concomitant]
     Active Substance: DONEPEZIL HYDROCHLORIDE
     Indication: DEMENTIA ALZHEIMER^S TYPE
     Dosage: 1 DF, UNK
     Route: 048
     Dates: start: 20150730, end: 20160315
  3. MEMANTINE FILM-COATED TABLETS [Suspect]
     Active Substance: MEMANTINE
     Dosage: 15 MG, DAILY
     Route: 048
     Dates: start: 20160301, end: 20160307
  4. PLAUNAC [Concomitant]
     Active Substance: OLMESARTAN MEDOXOMIL
     Indication: HYPERTENSION
     Dosage: 1 DF, UNK
     Route: 048
     Dates: start: 2005
  5. TORVAST [Concomitant]
     Active Substance: ATORVASTATIN
     Indication: HYPERCHOLESTEROLAEMIA
     Dosage: 1 DF, UNK
     Route: 048
     Dates: start: 20140601, end: 20160315
  6. MEMANTINE FILM-COATED TABLETS [Suspect]
     Active Substance: MEMANTINE
     Dosage: UNK
     Route: 048
     Dates: start: 20160314
  7. MEMANTINE FILM-COATED TABLETS [Suspect]
     Active Substance: MEMANTINE
     Dosage: 20 MG, DAILY
     Route: 048
     Dates: start: 20160308, end: 20160314
  8. MEMANTINE FILM-COATED TABLETS [Suspect]
     Active Substance: MEMANTINE
     Dosage: 10 MG, DAILY
     Route: 048
     Dates: start: 20160223, end: 20160229

REACTIONS (2)
  - Hypertension [Not Recovered/Not Resolved]
  - Hepatic enzyme increased [Recovered/Resolved]

NARRATIVE: CASE EVENT DATE: 20160313
